FAERS Safety Report 16314758 (Version 1)
Quarter: 2019Q2

REPORT INFORMATION
  Report Type: Spontaneous
  Country: IT (occurrence: IT)
  Receive Date: 20190515
  Receipt Date: 20190515
  Transmission Date: 20190711
  Serious: Yes (Hospitalization)
  Sender: FDA-Public Use
  Company Number: IT-PFIZER INC-2019200016

PATIENT
  Age: 72 Year
  Sex: Female

DRUGS (2)
  1. TYGACIL [Suspect]
     Active Substance: TIGECYCLINE
     Indication: POSTOPERATIVE WOUND INFECTION
     Dosage: 100 MG, 1X/DAY
  2. GENTAMICIN. [Suspect]
     Active Substance: GENTAMICIN
     Indication: POSTOPERATIVE WOUND INFECTION
     Dosage: 160 MG, 1X/DAY

REACTIONS (2)
  - Hypokalaemia [Unknown]
  - Hypocalcaemia [Unknown]

NARRATIVE: CASE EVENT DATE: 20190411
